FAERS Safety Report 21928820 (Version 2)
Quarter: 2023Q1

REPORT INFORMATION
  Report Type: Spontaneous
  Country: IL (occurrence: IL)
  Receive Date: 20230131
  Receipt Date: 20230302
  Transmission Date: 20230418
  Serious: Yes (Other)
  Sender: FDA-Public Use
  Company Number: IL-NOVOPROD-1014877

PATIENT
  Sex: Female
  Weight: 55 kg

DRUGS (3)
  1. OZEMPIC [Suspect]
     Active Substance: SEMAGLUTIDE
     Dosage: 0.25 MG ONCE IN TWO WEEKS
     Dates: start: 202207
  2. OZEMPIC [Suspect]
     Active Substance: SEMAGLUTIDE
     Indication: Weight control
     Dosage: 0.25 MG
     Dates: start: 202205
  3. OZEMPIC [Suspect]
     Active Substance: SEMAGLUTIDE
     Dosage: REINITIATED

REACTIONS (2)
  - Appendicitis [Recovered/Resolved]
  - Off label use [Unknown]

NARRATIVE: CASE EVENT DATE: 20220501
